FAERS Safety Report 4817112-0 (Version None)
Quarter: 2005Q4

REPORT INFORMATION
  Report Type: 
  Country: None (occurrence: None)
  Receive Date: 20051018
  Receipt Date: 20041011
  Transmission Date: 20060501
  Serious: Yes (Other)
  Sender: FDA-Public Use
  Company Number: PHEH2004US06438

PATIENT
  Age: 59 Year
  Sex: Female
  Weight: 78 kg

DRUGS (3)
  1. ZOMETA [Suspect]
     Indication: BREAST CANCER METASTATIC
     Dosage: 4 MG, QMO; INTRAVENOUS
     Route: 042
     Dates: start: 20020226, end: 20040101
  2. AREDIA [Suspect]
     Indication: BREAST CANCER METASTATIC
     Dosage: 90 MG, QMO; INTRAVENOUS
     Route: 042
     Dates: start: 20040120
  3. TAXOTERE [Concomitant]

REACTIONS (5)
  - MOUTH ULCERATION [None]
  - OSTEONECROSIS [None]
  - STOMATITIS [None]
  - STOMATITIS NECROTISING [None]
  - WOUND COMPLICATION [None]
